FAERS Safety Report 7141496-4 (Version None)
Quarter: 2010Q4

REPORT INFORMATION
  Report Type: 
  Country: None (occurrence: None)
  Receive Date: 20101207
  Receipt Date: 20101124
  Transmission Date: 20110411
  Serious: Yes (Hospitalization)
  Sender: FDA-Public Use
  Company Number: US-TYCO HEALTHCARE/MALLINCKRODT-T201002352

PATIENT
  Age: 49 Year
  Sex: Female

DRUGS (1)
  1. METHADOSE [Suspect]
     Dosage: TENFOLD NORMAL DOSE

REACTIONS (3)
  - LEUKOENCEPHALOPATHY [None]
  - OVERDOSE [None]
  - RESPIRATORY FAILURE [None]
